FAERS Safety Report 4596418-7 (Version None)
Quarter: 2005Q1

REPORT INFORMATION
  Report Type: 
  Country: None (occurrence: None)
  Receive Date: 20050228
  Receipt Date: 20050214
  Transmission Date: 20050727
  Serious: Yes (Other)
  Sender: FDA-Public Use
  Company Number: 2005032335

PATIENT
  Age: 70 Year
  Sex: Male

DRUGS (5)
  1. CELECOXIB (CELECOXIB) [Suspect]
     Indication: ARTHRITIS
     Dosage: ORAL
     Route: 048
  2. VALSARTAN (VALSARTAN) [Concomitant]
  3. NIFEDIPINE [Concomitant]
  4. AMIODARONE HCL [Concomitant]
  5. WARFARIN SODIUM [Concomitant]

REACTIONS (2)
  - ATRIAL FIBRILLATION [None]
  - DEEP VEIN THROMBOSIS [None]
